FAERS Safety Report 5669067-7 (Version None)
Quarter: 2008Q1

REPORT INFORMATION
  Report Type: 
  Country: None (occurrence: None)
  Receive Date: 20080317
  Receipt Date: 20080306
  Transmission Date: 20080703
  Serious: Yes (Hospitalization)
  Sender: FDA-Public Use
  Company Number: CZ-NOVOPROD-273047

PATIENT
  Sex: Female
  Weight: 53 kg

DRUGS (3)
  1. LEVEMIR [Suspect]
     Indication: DIABETES MELLITUS
     Dosage: 38 IU, QD
     Route: 058
     Dates: start: 20070401
  2. NOVORAPID [Suspect]
     Indication: DIABETES MELLITUS
     Dosage: 18 IU, QD
     Route: 058
     Dates: start: 20070401
  3. DOPEGYT [Concomitant]
     Dosage: 750 MG, QD
     Dates: start: 20071201

REACTIONS (5)
  - CONDITION AGGRAVATED [None]
  - DIABETIC KETOACIDOSIS [None]
  - DIABETIC NEPHROPATHY [None]
  - ECLAMPSIA [None]
  - POLYHYDRAMNIOS [None]
